FAERS Safety Report 21151118 (Version 1)
Quarter: 2022Q3

REPORT INFORMATION
  Report Type: Spontaneous
  Country: US (occurrence: US)
  Receive Date: 20220730
  Receipt Date: 20220730
  Transmission Date: 20221026
  Serious: Yes (Other)
  Sender: FDA-Public Use
  Company Number: US-BRISTOL-MYERS SQUIBB COMPANY-2022-079711

PATIENT
  Age: 68 Year
  Sex: Male
  Weight: 100 kg

DRUGS (16)
  1. REVLIMID [Suspect]
     Active Substance: LENALIDOMIDE
     Indication: Plasma cell myeloma
     Dosage: 1X 21 DAYS /28DAYS
     Route: 048
  2. REVLIMID [Suspect]
     Active Substance: LENALIDOMIDE
     Route: 065
  3. REVLIMID [Suspect]
     Active Substance: LENALIDOMIDE
     Dosage: USE AS DIRECTED
     Route: 048
  4. REVLIMID [Suspect]
     Active Substance: LENALIDOMIDE
     Dosage: USE AS DIRECTED
     Route: 048
  5. FLUI-AMOXICILLIN [Concomitant]
     Indication: Product used for unknown indication
     Route: 048
     Dates: start: 20211028
  6. ATIVAN [Concomitant]
     Active Substance: LORAZEPAM
     Indication: Product used for unknown indication
     Route: 048
     Dates: start: 20210719
  7. ELIQUIS [Concomitant]
     Active Substance: APIXABAN
     Indication: Product used for unknown indication
     Dosage: 5MG X 2 DAILY
     Route: 048
     Dates: start: 20211012
  8. AGNA [GABAPENTIN] [Concomitant]
     Indication: Product used for unknown indication
     Route: 048
     Dates: start: 20220621
  9. HYPERNIL [LISINOPRIL] [Concomitant]
     Indication: Product used for unknown indication
     Route: 048
     Dates: start: 20210719
  10. LORIDIN [LORATADINE] [Concomitant]
     Indication: Product used for unknown indication
     Route: 048
     Dates: start: 20210528
  11. LOPEZ [LORAZEPAM] [Concomitant]
     Indication: Product used for unknown indication
     Route: 048
     Dates: start: 20210528
  12. LAXEL [MAGNESIUM HYDROXIDE] [Concomitant]
     Indication: Product used for unknown indication
     Dosage: DAILY
     Route: 048
     Dates: start: 20210902
  13. OMEPRAZOLE [Concomitant]
     Active Substance: OMEPRAZOLE
     Indication: Product used for unknown indication
     Route: 048
     Dates: start: 20210719
  14. PROCHLORPERAZINE MALEATE [Concomitant]
     Active Substance: PROCHLORPERAZINE MALEATE
     Indication: Product used for unknown indication
     Route: 048
     Dates: start: 20211229
  15. SENTA [SERTRALINE HYDROCHLORIDE] [Concomitant]
     Indication: Product used for unknown indication
     Route: 048
     Dates: start: 20210528
  16. SENTA [SERTRALINE HYDROCHLORIDE] [Concomitant]
     Route: 048
     Dates: start: 20210719

REACTIONS (1)
  - Neuropathy peripheral [Recovering/Resolving]

NARRATIVE: CASE EVENT DATE: 20210401
